FAERS Safety Report 13376433 (Version 6)
Quarter: 2017Q4

REPORT INFORMATION
  Report Type: Spontaneous
  Country: US (occurrence: US)
  Receive Date: 20170328
  Receipt Date: 20171120
  Transmission Date: 20180320
  Serious: No
  Sender: FDA-Public Use
  Company Number: US-PFIZER INC-2017130375

PATIENT
  Age: 61 Year
  Sex: Male

DRUGS (7)
  1. XELJANZ XR [Suspect]
     Active Substance: TOFACITINIB CITRATE
     Indication: RHEUMATOID ARTHRITIS
     Dosage: 1 DF, DAILY
     Route: 048
     Dates: start: 201310
  2. PREDNISONE. [Concomitant]
     Active Substance: PREDNISONE
     Indication: ASTHENIA
     Dosage: UNK
  3. INDAPAMIDE. [Concomitant]
     Active Substance: INDAPAMIDE
     Dosage: 2.5 MG, (QAM)
     Route: 048
  4. DILTIAZEM HCL [Concomitant]
     Active Substance: DILTIAZEM HYDROCHLORIDE
     Dosage: 360 MG, UNK
  5. XELJANZ XR [Suspect]
     Active Substance: TOFACITINIB CITRATE
     Dosage: 11 MG, DAILY
     Route: 048
     Dates: start: 201504
  6. CRESTOR [Concomitant]
     Active Substance: ROSUVASTATIN CALCIUM
     Dosage: UNK
  7. SYNTHROID [Concomitant]
     Active Substance: LEVOTHYROXINE SODIUM
     Dosage: 0.112 MG, UNK

REACTIONS (11)
  - Oedema peripheral [Unknown]
  - Asthenia [Unknown]
  - Neck pain [Unknown]
  - Arthralgia [Unknown]
  - Back pain [Unknown]
  - Joint swelling [Unknown]
  - Sleep disorder [Unknown]
  - Joint stiffness [Unknown]
  - Condition aggravated [Unknown]
  - Vision blurred [Unknown]
  - Dizziness [Unknown]
